FAERS Safety Report 14678391 (Version 1)
Quarter: 2018Q1

REPORT INFORMATION
  Report Type: Spontaneous
  Country: US (occurrence: US)
  Receive Date: 20180326
  Receipt Date: 20180326
  Transmission Date: 20180509
  Serious: No
  Sender: FDA-Public Use
  Company Number: US-JNJFOC-20180304014

PATIENT
  Sex: Female

DRUGS (3)
  1. ECOTRIN [Concomitant]
     Active Substance: ASPIRIN
     Indication: PAIN
     Route: 065
  2. TYLENOL 8HR [Suspect]
     Active Substance: ACETAMINOPHEN
     Indication: PAIN
     Dosage: 1 TABLET 2 HOURS AGO
     Route: 065
     Dates: start: 20180301, end: 20180301
  3. TYLENOL 8HR [Suspect]
     Active Substance: ACETAMINOPHEN
     Indication: PAIN
     Dosage: 1 TABLET 2 HOURS AGO
     Route: 065
     Dates: start: 20180301, end: 20180301

REACTIONS (2)
  - Hypertension [Recovering/Resolving]
  - Incorrect dose administered [Unknown]

NARRATIVE: CASE EVENT DATE: 20180301
